FAERS Safety Report 16439868 (Version 1)
Quarter: 2019Q2

REPORT INFORMATION
  Report Type: Spontaneous
  Country: US (occurrence: US)
  Receive Date: 20190617
  Receipt Date: 20190617
  Transmission Date: 20190711
  Serious: Yes (Hospitalization, Other)
  Sender: FDA-Public Use
  Company Number: US-GLAXOSMITHKLINE-US2019104285

PATIENT
  Age: 57 Year
  Sex: Female

DRUGS (1)
  1. BENLYSTA [Suspect]
     Active Substance: BELIMUMAB
     Indication: SYSTEMIC LUPUS ERYTHEMATOSUS
     Dosage: UNK
     Route: 042

REACTIONS (9)
  - Medical induction of coma [Recovered/Resolved]
  - Abdominal abscess [Recovered/Resolved]
  - Off label use [Unknown]
  - Gastrointestinal haemorrhage [Recovered/Resolved]
  - Knee arthroplasty [Recovered/Resolved]
  - Clostridium difficile infection [Unknown]
  - Nosocomial infection [Recovered/Resolved]
  - Inappropriate schedule of product administration [Unknown]
  - Nosocomial infection [Unknown]

NARRATIVE: CASE EVENT DATE: 201702
